FAERS Safety Report 6764411-1 (Version None)
Quarter: 2010Q2

REPORT INFORMATION
  Report Type: 
  Country: None (occurrence: None)
  Receive Date: 20100609
  Receipt Date: 20100515
  Transmission Date: 20101027
  Serious: No
  Sender: FDA-Public Use
  Company Number: 2010011810

PATIENT
  Age: 3 Year
  Sex: Male
  Weight: 15.4223 kg

DRUGS (2)
  1. CHILDREN'S ZYRTEC ALLERGY [Suspect]
     Indication: HYPERSENSITIVITY
     Dosage: 1/2 TSP ONCE A DAY, ORAL
     Route: 048
     Dates: start: 20100418, end: 20100419
  2. MOTRIN [Suspect]
     Indication: DRUG USE FOR UNKNOWN INDICATION

REACTIONS (5)
  - BACTERIAL INFECTION [None]
  - CONDITION AGGRAVATED [None]
  - PRODUCT QUALITY ISSUE [None]
  - PYREXIA [None]
  - WRONG DRUG ADMINISTERED [None]
